FAERS Safety Report 26011536 (Version 1)
Quarter: 2025Q4

REPORT INFORMATION
  Report Type: Spontaneous
  Country: AU (occurrence: AU)
  Receive Date: 20251107
  Receipt Date: 20251107
  Transmission Date: 20260118
  Serious: Yes (Other)
  Sender: TEVA
  Company Number: AU-TEVA-VS-3387690

PATIENT
  Age: 23 Year
  Sex: Female

DRUGS (1)
  1. FREMANEZUMAB [Suspect]
     Active Substance: FREMANEZUMAB
     Indication: Product used for unknown indication
     Route: 065

REACTIONS (5)
  - Hepatocellular carcinoma [Unknown]
  - Headache [Unknown]
  - Nausea [Unknown]
  - Paraneoplastic syndrome [Unknown]
  - Vomiting [Unknown]
